FAERS Safety Report 26079963 (Version 1)
Quarter: 2025Q4

REPORT INFORMATION
  Report Type: Spontaneous
  Country: EU (occurrence: EU)
  Receive Date: 20251123
  Receipt Date: 20251123
  Transmission Date: 20260118
  Serious: Yes (Other)
  Sender: BRISTOL-MYERS SQUIBB COMPANY
  Company Number: None

PATIENT
  Age: 65 Year
  Sex: Male

DRUGS (2)
  1. ABRAXANE [Suspect]
     Active Substance: PACLITAXEL
     Indication: Pancreatic carcinoma metastatic
     Dosage: OUT OF STOCK/ DAYS 1,8,15 EVERY 28 DAYS
     Route: 042
     Dates: start: 20250703
  2. GEMCITABINE [Suspect]
     Active Substance: GEMCITABINE
     Indication: Pancreatic carcinoma metastatic
     Dosage: NOT AVAILABLE (1ST CYCLE DOSE REDUCED TO 75%) / DAYS 1,8,15 EVERY 28 DAYS
     Route: 042
     Dates: start: 20250703

REACTIONS (11)
  - Vomiting [Recovered/Resolved]
  - Nausea [Recovered/Resolved]
  - Abdominal pain [Recovered/Resolved]
  - Asthenia [Unknown]
  - Dyspnoea exertional [Unknown]
  - Pyrexia [Recovered/Resolved]
  - Peripheral vein thrombosis [Recovered/Resolved]
  - Paraesthesia [Not Recovered/Not Resolved]
  - Hypotension [Recovered/Resolved]
  - Dysgeusia [Recovered/Resolved]
  - Decreased appetite [Recovered/Resolved]

NARRATIVE: CASE EVENT DATE: 20250703
